FAERS Safety Report 11759885 (Version 1)
Quarter: 2015Q4

REPORT INFORMATION
  Report Type: Spontaneous
  Country: US (occurrence: US)
  Receive Date: 20151120
  Receipt Date: 20151120
  Transmission Date: 20160304
  Serious: No
  Sender: FDA-Public Use
  Company Number: US-ELI_LILLY_AND_COMPANY-US201210007826

PATIENT
  Sex: Female

DRUGS (1)
  1. FORTEO [Suspect]
     Active Substance: TERIPARATIDE
     Dosage: UNK, QD
     Dates: start: 20121011

REACTIONS (9)
  - Polyuria [Recovering/Resolving]
  - Bone pain [Unknown]
  - Headache [Unknown]
  - Muscle spasms [Unknown]
  - Sleep disorder [Unknown]
  - Dyspnoea [Unknown]
  - Renal pain [Unknown]
  - Palpitations [Unknown]
  - Decreased appetite [Unknown]
